FAERS Safety Report 12809453 (Version 1)
Quarter: 2016Q4

REPORT INFORMATION
  Report Type: Spontaneous
  Country: US (occurrence: US)
  Receive Date: 20161005
  Receipt Date: 20161005
  Transmission Date: 20170207
  Serious: No
  Sender: FDA-Public Use
  Company Number: US-ASTRAZENECA-2016SF02832

PATIENT
  Age: 57 Year
  Sex: Female
  Weight: 76.7 kg

DRUGS (3)
  1. RHINOCORT ALLERGY [Suspect]
     Active Substance: BUDESONIDE
     Indication: MULTIPLE ALLERGIES
     Dosage: 2 NASAL SPRAYS EACH NOSTRIL ONCE A DAY
     Route: 045
  2. SULFASALAZINE. [Concomitant]
     Active Substance: SULFASALAZINE
     Indication: CROHN^S DISEASE
  3. FOLIC ACID. [Concomitant]
     Active Substance: FOLIC ACID
     Indication: SUPPLEMENTATION THERAPY

REACTIONS (4)
  - Nasal dryness [Recovered/Resolved]
  - Nasal pruritus [Recovered/Resolved]
  - Condition aggravated [Recovered/Resolved]
  - Rhinalgia [Recovered/Resolved]
